FAERS Safety Report 18304280 (Version 2)
Quarter: 2020Q4

REPORT INFORMATION
  Report Type: Report from Study
  Country: DE (occurrence: DE)
  Receive Date: 20200923
  Receipt Date: 20201001
  Transmission Date: 20210113
  Serious: Yes (Hospitalization)
  Sender: FDA-Public Use
  Company Number: DE-TAKEDA-2020TUS039743

PATIENT
  Age: 59 Year
  Sex: Male
  Weight: 112 kg

DRUGS (9)
  1. BORTEZOMIB. [Suspect]
     Active Substance: BORTEZOMIB
     Indication: WALDENSTROM^S MACROGLOBULINAEMIA
     Dosage: 3.5 MILLIGRAM, 1/WEEK
     Route: 058
     Dates: start: 20200129, end: 20200702
  2. RITUXIMAB. [Suspect]
     Active Substance: RITUXIMAB
     Dosage: 1400 MILLIGRAM
     Route: 058
     Dates: start: 20200326, end: 20200811
  3. RITUXIMAB. [Suspect]
     Active Substance: RITUXIMAB
     Indication: WALDENSTROM^S MACROGLOBULINAEMIA
     Dosage: 820 MILLIGRAM
     Route: 042
     Dates: start: 20200129, end: 20200129
  4. ASPIRIN. [Concomitant]
     Active Substance: ASPIRIN
     Indication: PROPHYLAXIS
     Dosage: 100 MILLIGRAM, QD
     Route: 048
  5. CONCOR [Concomitant]
     Active Substance: BISOPROLOL FUMARATE
     Indication: HYPERTENSION
     Dosage: 2.5 MILLIGRAM, QD
     Route: 048
  6. IBRUTINIB [Suspect]
     Active Substance: IBRUTINIB
     Indication: WALDENSTROM^S MACROGLOBULINAEMIA
     Dosage: 420 MILLIGRAM
     Route: 048
     Dates: start: 20200129, end: 20200908
  7. RAMIPRIL. [Concomitant]
     Active Substance: RAMIPRIL
     Indication: HYPERTENSION
     Dosage: 2.5 MILLIGRAM
     Route: 048
     Dates: start: 201801
  8. ATORVASTATIN                       /01326102/ [Concomitant]
     Active Substance: ATORVASTATIN
     Indication: HYPERCHOLESTEROLAEMIA
     Dosage: 20 MILLIGRAM
     Route: 065
  9. RITUXIMAB. [Suspect]
     Active Substance: RITUXIMAB
     Indication: WALDENSTROM^S MACROGLOBULINAEMIA
     Dosage: 1600 MILLIGRAM
     Route: 058
     Dates: start: 20200226, end: 20200226

REACTIONS (1)
  - Transient ischaemic attack [Unknown]

NARRATIVE: CASE EVENT DATE: 20200909
